FAERS Safety Report 19901803 (Version 1)
Quarter: 2021Q3

REPORT INFORMATION
  Report Type: Report from Study
  Country: None (occurrence: ES)
  Receive Date: 20210929
  Receipt Date: 20210929
  Transmission Date: 20211014
  Serious: Yes (Other)
  Sender: FDA-Public Use
  Company Number: ES-ABBVIE-21K-144-4097912-00

PATIENT
  Age: 69 Year
  Sex: Female

DRUGS (1)
  1. IBRUTINIB [Suspect]
     Active Substance: IBRUTINIB
     Indication: CHRONIC LYMPHOCYTIC LEUKAEMIA
     Dosage: DATE OF LAST ADMINISTRATION: 21?SEP?2021
     Route: 048
     Dates: start: 20180719

REACTIONS (1)
  - Hepatic cyst [Unknown]

NARRATIVE: CASE EVENT DATE: 20210831
